FAERS Safety Report 9465795 (Version 1)
Quarter: 2013Q3

REPORT INFORMATION
  Report Type: Spontaneous
  Country: US (occurrence: US)
  Receive Date: 20130820
  Receipt Date: 20130820
  Transmission Date: 20140515
  Serious: Yes (Disabling, Other)
  Sender: FDA-Public Use
  Company Number: US-PFIZER INC-2013238958

PATIENT
  Sex: Female
  Weight: 64.85 kg

DRUGS (6)
  1. ARTHROTEC [Suspect]
     Indication: OSTEOARTHRITIS
     Dosage: UNK, 1X/DAY
     Dates: end: 2012
  2. SYNVISC [Suspect]
     Indication: OSTEOARTHRITIS
     Dosage: UNK
  3. SUPARTZ [Suspect]
     Indication: OSTEOARTHRITIS
     Dosage: UNK
  4. METFORMIN [Concomitant]
     Indication: TYPE 2 DIABETES MELLITUS
     Dosage: 500 MG, 2X/DAY
  5. LOVASTATIN [Concomitant]
     Indication: BLOOD CHOLESTEROL ABNORMAL
     Dosage: 20 MG, 1X/DAY
  6. LISINOPRIL [Concomitant]
     Indication: HYPERTENSION
     Dosage: 10 MG, 1X/DAY

REACTIONS (2)
  - Drug ineffective [Unknown]
  - Osteoarthritis [Unknown]
